FAERS Safety Report 11643546 (Version 4)
Quarter: 2016Q1

REPORT INFORMATION
  Report Type: Spontaneous
  Country: GB (occurrence: GB)
  Receive Date: 20151020
  Receipt Date: 20160107
  Transmission Date: 20160525
  Serious: Yes (Other)
  Sender: FDA-Public Use
  Company Number: GB-ACTAVIS-2015-22155

PATIENT
  Age: 53 Year
  Sex: Female
  Weight: 118.8 kg

DRUGS (11)
  1. CITALOPRAM [Concomitant]
     Active Substance: CITALOPRAM HYDROBROMIDE
     Indication: PRODUCT USED FOR UNKNOWN INDICATION
     Dosage: 40 MG, DAILY; AT 8:00
     Route: 048
     Dates: start: 20150414
  2. VESICARE [Concomitant]
     Active Substance: SOLIFENACIN SUCCINATE
     Indication: PRODUCT USED FOR UNKNOWN INDICATION
     Dosage: 10 MG, DAILY; AT 8:00
     Route: 048
     Dates: start: 20141202
  3. NAPROXEN. [Concomitant]
     Active Substance: NAPROXEN
     Indication: PRODUCT USED FOR UNKNOWN INDICATION
     Dosage: 500 MG, DAILY; AT 8:00
     Route: 048
     Dates: start: 20141202
  4. OMEPRAZOLE. [Concomitant]
     Active Substance: OMEPRAZOLE
     Indication: PRODUCT USED FOR UNKNOWN INDICATION
     Dosage: 20 MG, DAILY; AT 08:00
     Route: 048
     Dates: start: 20141202
  5. TRAMADOL. [Concomitant]
     Active Substance: TRAMADOL
     Indication: PRODUCT USED FOR UNKNOWN INDICATION
     Dosage: 200 MG, BID; AT 08:00 AND 17: 00
     Route: 048
     Dates: start: 20141202
  6. TIZANIDINE (UNKNOWN) [Interacting]
     Active Substance: TIZANIDINE
     Indication: PRODUCT USED FOR UNKNOWN INDICATION
     Dosage: 2 DF, TID; 8:00; 14: 00; 22:00
     Route: 048
     Dates: start: 20141202
  7. DOUBLEBASE [Concomitant]
     Active Substance: ISOPROPYL MYRISTATE\PARAFFIN
     Indication: PRODUCT USED FOR UNKNOWN INDICATION
     Dosage: UNK, PRN, USE AS NEEDED
     Route: 065
     Dates: start: 20150810, end: 20150811
  8. GABAPENTIN. [Concomitant]
     Active Substance: GABAPENTIN
     Indication: PRODUCT USED FOR UNKNOWN INDICATION
     Dosage: 900 MG, TID; 8:00; 14: 00; AND 22: 00
     Route: 048
     Dates: start: 20141202
  9. PARACETAMOL [Concomitant]
     Active Substance: ACETAMINOPHEN
     Indication: PRODUCT USED FOR UNKNOWN INDICATION
     Dosage: 1 G, PRN; 1 G AT 6 HOURS; AS REQUIRED
     Route: 048
     Dates: start: 20141202
  10. CIPROFLOXACIN HYDROCHLORIDE (UNKNOWN) [Suspect]
     Active Substance: CIPROFLOXACIN HYDROCHLORIDE
     Indication: URINARY TRACT INFECTION
     Dosage: UNK UNK, UNKNOWN
     Route: 065
     Dates: start: 20150928
  11. DIPROBASE                          /01210201/ [Concomitant]
     Indication: PRODUCT USED FOR UNKNOWN INDICATION
     Dosage: UNK, PRN, APPLY AS NEEDED
     Route: 061
     Dates: start: 20141205

REACTIONS (5)
  - Hepatitis [Recovered/Resolved]
  - Liver function test abnormal [Recovered/Resolved]
  - Abdominal tenderness [Recovered/Resolved]
  - Drug interaction [Unknown]
  - Chest pain [Recovered/Resolved]

NARRATIVE: CASE EVENT DATE: 20150918
